FAERS Safety Report 9501374 (Version 1)
Quarter: 2013Q1

REPORT INFORMATION
  Report Type: Spontaneous
  Country: US (occurrence: None)
  Receive Date: 20130122
  Receipt Date: 20130122
  Transmission Date: 20140127
  Serious: Yes (Other)
  Sender: FDA-Public Use
  Company Number: 2012070004

PATIENT
  Age: 63 Year
  Sex: Male

DRUGS (4)
  1. MUSE [Suspect]
     Indication: ERECTILE DYSFUNCTION
     Dosage: 125 MCG, AS REQUIRED
     Route: 066
     Dates: start: 20120629
  2. LOSARTAN (LOSARTAN) [Concomitant]
  3. NIFEDIPINE (NIFEDIPINE) [Concomitant]
  4. SIMVASTATIN (SIMVASTATIN) [Concomitant]

REACTIONS (1)
  - Priapism [None]
